FAERS Safety Report 4587911-1 (Version None)
Quarter: 2005Q1

REPORT INFORMATION
  Report Type: 
  Country: None (occurrence: None)
  Receive Date: 20050219
  Receipt Date: 20050117
  Transmission Date: 20050727
  Serious: Yes (Hospitalization)
  Sender: FDA-Public Use
  Company Number: PHBS2005JP01153

PATIENT
  Age: 1 Year
  Sex: Male
  Weight: 9 kg

DRUGS (1)
  1. VOLTAREN [Suspect]
     Indication: PYREXIA
     Dosage: 3/4 OF 50 MG SUPP/ONCE
     Route: 054
     Dates: start: 20050117, end: 20050117

REACTIONS (2)
  - ACCIDENTAL OVERDOSE [None]
  - BODY TEMPERATURE DECREASED [None]
